FAERS Safety Report 9409714 (Version 1)
Quarter: 2013Q3

REPORT INFORMATION
  Report Type: Report from Study
  Country: US (occurrence: US)
  Receive Date: 20130719
  Receipt Date: 20130719
  Transmission Date: 20140515
  Serious: Yes (Other)
  Sender: FDA-Public Use
  Company Number: PHEH2013US015267

PATIENT
  Sex: Male

DRUGS (2)
  1. GLEEVEC [Suspect]
     Indication: GASTRIC CANCER
     Dosage: UNK UKN, DAILY
     Route: 048
     Dates: start: 20080121
  2. GLEEVEC [Suspect]
     Dosage: 400 MG, BID
     Route: 048

REACTIONS (1)
  - Hepatic lesion [Unknown]
